FAERS Safety Report 4991153-5 (Version None)
Quarter: 2006Q2

REPORT INFORMATION
  Report Type: 
  Country: None (occurrence: None)
  Receive Date: 20060428
  Receipt Date: 20060412
  Transmission Date: 20061013
  Serious: Yes (Life-Threatening)
  Sender: FDA-Public Use
  Company Number: DE200604002089

PATIENT
  Age: 66 Year
  Sex: Female

DRUGS (3)
  1. FORTEO [Suspect]
     Indication: OSTEOPOROSIS
     Dosage: DAILY (1/D), SUBCUTANEOUS
     Route: 058
     Dates: start: 20050519, end: 20050915
  2. FORTEO [Concomitant]
  3. CALCIMAGON-D3/SCH/(CALCIUM CARBONATE, COLECALCIFEROL) [Concomitant]

REACTIONS (1)
  - PLASMACYTOMA [None]
